FAERS Safety Report 18663909 (Version 3)
Quarter: 2020Q4

REPORT INFORMATION
  Report Type: Other
  Country: IT (occurrence: IT)
  Receive Date: 20201225
  Receipt Date: 20201230
  Transmission Date: 20210114
  Serious: Yes (Other)
  Sender: FDA-Public Use
  Company Number: IT-ROCHE-2628853

PATIENT
  Age: 53 Year
  Sex: Male

DRUGS (12)
  1. ENOXAPARIN [Concomitant]
     Active Substance: ENOXAPARIN
  2. BENDAMUSTINE [Concomitant]
     Active Substance: BENDAMUSTINE
  3. ZOFENOPRIL [Concomitant]
     Active Substance: ZOFENOPRIL
  4. FILGRASTIM [Concomitant]
     Active Substance: FILGRASTIM
     Indication: PROPHYLAXIS
  5. ACYCLOVIR. [Concomitant]
     Active Substance: ACYCLOVIR
     Indication: PROPHYLAXIS
  6. TRIMETHOPRIM SULFAMETHOXAZOLE [Concomitant]
     Active Substance: SULFAMETHOXAZOLE\TRIMETHOPRIM
     Indication: PROPHYLAXIS
  7. FEBUXOSTAT. [Concomitant]
     Active Substance: FEBUXOSTAT
     Indication: PROPHYLAXIS
  8. ATORVASTATIN [Concomitant]
     Active Substance: ATORVASTATIN
  9. CARDIOASPIRIN [Concomitant]
     Active Substance: ASPIRIN
  10. OBINUTUZUMAB. [Suspect]
     Active Substance: OBINUTUZUMAB
     Indication: B-CELL LYMPHOMA
     Route: 042
     Dates: start: 20191109
  11. PANTOPRAZOLE [Concomitant]
     Active Substance: PANTOPRAZOLE
     Indication: PROPHYLAXIS
  12. LISPRO INSULIN [Concomitant]
     Active Substance: INSULIN LISPRO

REACTIONS (2)
  - Cytomegalovirus enteritis [Recovered/Resolved]
  - Parasitic gastroenteritis [Recovered/Resolved]

NARRATIVE: CASE EVENT DATE: 20200504
